FAERS Safety Report 8454034-0 (Version None)
Quarter: 2012Q2

REPORT INFORMATION
  Report Type: 
  Country: None (occurrence: None)
  Receive Date: 20120620
  Receipt Date: 20120612
  Transmission Date: 20120825
  Serious: Yes (Hospitalization, Other)
  Sender: FDA-Public Use
  Company Number: US-JNJFOC-20120516309

PATIENT
  Sex: Male
  Weight: 104.78 kg

DRUGS (17)
  1. ASPIRIN [Suspect]
     Indication: ILL-DEFINED DISORDER
     Dates: end: 20111001
  2. ASPIRIN [Suspect]
     Dates: start: 20111108
  3. SULINDAC [Suspect]
     Indication: ILL-DEFINED DISORDER
  4. ALLOPURINOL [Concomitant]
  5. BENICAR [Concomitant]
  6. PRILOSEC [Concomitant]
  7. AMLODIPINE [Concomitant]
  8. BUMEX [Concomitant]
  9. GABAPENTIN [Concomitant]
  10. INSULIN ASPART [Concomitant]
  11. HYDRALAZINE HYDROCHLORIDE [Concomitant]
  12. SIMVASTATIN [Concomitant]
  13. LANTUS [Concomitant]
  14. SYMLIN [Concomitant]
  15. XARELTO [Suspect]
     Indication: KNEE ARTHROPLASTY
     Route: 048
     Dates: start: 20111108, end: 20111101
  16. XARELTO [Suspect]
     Indication: THROMBOSIS PROPHYLAXIS
     Route: 048
     Dates: start: 20111108, end: 20111101
  17. MENTAX [Concomitant]

REACTIONS (1)
  - GASTROINTESTINAL HAEMORRHAGE [None]
